FAERS Safety Report 23924007 (Version 1)
Quarter: 2024Q2

REPORT INFORMATION
  Report Type: Spontaneous
  Country: US (occurrence: US)
  Receive Date: 20240531
  Receipt Date: 20240531
  Transmission Date: 20240716
  Serious: Yes (Other)
  Sender: FDA-Public Use
  Company Number: US-SA-2024SA127876

PATIENT
  Age: 73 Year
  Sex: Male

DRUGS (1)
  1. DUPIXENT [Suspect]
     Active Substance: DUPILUMAB
     Indication: Dermatitis atopic
     Dosage: 300 MG, QOW

REACTIONS (9)
  - Neoplasm malignant [Unknown]
  - Rash erythematous [Not Recovered/Not Resolved]
  - Dry skin [Unknown]
  - Depressed mood [Unknown]
  - Initial insomnia [Unknown]
  - Fatigue [Unknown]
  - Disturbance in attention [Unknown]
  - Pruritus [Not Recovered/Not Resolved]
  - Dermatitis atopic [Unknown]
